FAERS Safety Report 8361472-3 (Version None)
Quarter: 2012Q2

REPORT INFORMATION
  Report Type: 
  Country: None (occurrence: None)
  Receive Date: 20120515
  Receipt Date: 20120509
  Transmission Date: 20120825
  Serious: Yes (Death, Life-Threatening, Hospitalization)
  Sender: FDA-Public Use
  Company Number: JP-CELGENEUS-087-50794-11092027

PATIENT
  Age: 66 Year
  Sex: Male
  Weight: 53 kg

DRUGS (37)
  1. ALLOPURINOL [Concomitant]
     Dosage: 300 MILLIGRAM
     Route: 048
     Dates: start: 20110605, end: 20110611
  2. GRANISETRON HCL [Concomitant]
     Dosage: 6 MILLIGRAM
     Route: 041
     Dates: start: 20110606, end: 20110610
  3. LECICARBON [Concomitant]
     Dates: start: 20110818
  4. COTRIM [Concomitant]
     Dosage: 4 DOSAGE FORMS
     Route: 048
     Dates: start: 20110812, end: 20111014
  5. CODEINE PHOSPHATE HYDRATE [Concomitant]
     Dosage: .6 GRAM
     Route: 048
     Dates: start: 20110906, end: 20110930
  6. PURSENNID [Concomitant]
     Dosage: 24 MILLIGRAM
     Route: 048
     Dates: start: 20110818
  7. VIDAZA [Suspect]
     Dosage: 100 MILLIGRAM
     Route: 058
     Dates: start: 20110810, end: 20110814
  8. GLAKAY [Concomitant]
     Dosage: 20 MILLIGRAM
     Route: 048
  9. RESTAMIN [Concomitant]
     Dosage: 30 MILLIGRAM
     Route: 048
     Dates: start: 20110908, end: 20110912
  10. GRANISETRON HCL [Concomitant]
     Dosage: 2 DOSAGE FORMS
     Route: 048
     Dates: start: 20110711, end: 20110715
  11. HYDROCORTISONE SODIUM SUCCINATE [Concomitant]
     Dosage: 300 MILLIGRAM
     Route: 048
     Dates: start: 20110810, end: 20110814
  12. LANSOPRAZOLE [Concomitant]
     Dosage: 15 MILLIGRAM
     Route: 048
     Dates: start: 20110809, end: 20110814
  13. ZOSYN [Concomitant]
     Dosage: 13.5 GRAM
     Route: 041
     Dates: start: 20111003, end: 20111011
  14. FLUCONAZOLE [Concomitant]
     Dosage: 100 MILLIGRAM
     Route: 048
  15. ACETAMINOPHEN [Concomitant]
     Dosage: 400 MILLIGRAM
     Route: 048
     Dates: start: 20110810, end: 20110814
  16. RESTAMIN [Concomitant]
     Dosage: 30 MILLIGRAM
     Route: 048
     Dates: start: 20110711, end: 20110715
  17. GRANISETRON HCL [Concomitant]
     Dosage: 6 MILLIGRAM
     Route: 041
     Dates: start: 20110810, end: 20110814
  18. VIDAZA [Suspect]
     Dosage: 100 MILLIGRAM
     Route: 058
     Dates: start: 20110711, end: 20110715
  19. DIOVAN [Concomitant]
     Dosage: 80 MILLIGRAM
     Route: 048
  20. PRIMOBOLAN-DEPOT INJ [Concomitant]
     Dosage: 45 MILLIGRAM
     Route: 048
     Dates: end: 20110611
  21. ACETAMINOPHEN [Concomitant]
     Dosage: 400 MILLIGRAM
     Route: 048
     Dates: start: 20110606, end: 20110610
  22. ACETAMINOPHEN [Concomitant]
     Dosage: 400 MILLIGRAM
     Route: 048
     Dates: start: 20110711, end: 20110715
  23. HUMULIN R [Concomitant]
     Route: 058
     Dates: start: 20111003, end: 20111015
  24. VIDAZA [Suspect]
     Indication: MYELODYSPLASTIC SYNDROME
     Dosage: 100 MILLIGRAM
     Route: 058
     Dates: start: 20110606, end: 20110610
  25. VIDAZA [Suspect]
     Dosage: 100 MILLIGRAM
     Route: 058
     Dates: start: 20110908, end: 20110912
  26. URALYT [Concomitant]
     Dosage: 6 DOSAGE FORMS
     Route: 048
     Dates: start: 20100605, end: 20110611
  27. ADALAT CC [Concomitant]
     Dosage: 20 MILLIGRAM
     Route: 048
  28. RESTAMIN [Concomitant]
     Dosage: 30 MILLIGRAM
     Route: 048
     Dates: start: 20110606, end: 20110610
  29. RESTAMIN [Concomitant]
     Dosage: 30 MILLIGRAM
     Route: 048
     Dates: start: 20110810, end: 20110814
  30. KETOPROFEN [Concomitant]
     Route: 065
     Dates: start: 20110810
  31. MAXIPIME [Concomitant]
     Dosage: 4 MILLIGRAM
     Route: 048
     Dates: start: 20110604, end: 20110617
  32. ACETAMINOPHEN [Concomitant]
     Dosage: 400 MILLIGRAM
     Route: 048
     Dates: start: 20110908, end: 20110912
  33. ZOSYN [Concomitant]
     Dosage: 13.5 GRAM
     Route: 041
     Dates: start: 20110820, end: 20110822
  34. MEROPENEM [Concomitant]
     Dosage: 3 GRAM
     Route: 041
     Dates: start: 20110907, end: 20110912
  35. RABEPRAZOLE SODIUM [Concomitant]
     Dosage: 10 MILLIGRAM
     Route: 048
  36. MEDICON [Concomitant]
     Dosage: 90 MILLIGRAM
     Route: 048
     Dates: start: 20110810, end: 20110820
  37. ARGAMATE [Concomitant]
     Dosage: 25 GRAM
     Route: 048
     Dates: start: 20110728, end: 20111014

REACTIONS (15)
  - INJECTION SITE PAIN [None]
  - BLOOD SODIUM DECREASED [None]
  - ASPARTATE AMINOTRANSFERASE INCREASED [None]
  - PYREXIA [None]
  - ALANINE AMINOTRANSFERASE INCREASED [None]
  - ACUTE MYELOID LEUKAEMIA [None]
  - ENTEROCOLITIS [None]
  - STOMATITIS [None]
  - INJECTION SITE ERYTHEMA [None]
  - FEBRILE NEUTROPENIA [None]
  - RENAL FAILURE [None]
  - CONSTIPATION [None]
  - HYPERGLYCAEMIA [None]
  - MYELODYSPLASTIC SYNDROME TRANSFORMATION [None]
  - INJECTION SITE SWELLING [None]
